FAERS Safety Report 4271516-6 (Version None)
Quarter: 2004Q1

REPORT INFORMATION
  Report Type: 
  Country: None (occurrence: None)
  Receive Date: 20040113
  Receipt Date: 20040105
  Transmission Date: 20041129
  Serious: Yes (Hospitalization)
  Sender: FDA-Public Use
  Company Number: 2004UW00077

PATIENT
  Age: 70 Year
  Sex: Female

DRUGS (5)
  1. ARIMIDEX [Suspect]
     Dosage: 1 MG QD PO
     Route: 048
     Dates: start: 20031001
  2. CARDIZEM [Concomitant]
  3. XANAX [Concomitant]
  4. ALBUTEROL [Concomitant]
  5. METAMUCIL ^PROCTER + GAMBLE^ [Concomitant]

REACTIONS (3)
  - DIVERTICULUM INTESTINAL [None]
  - INTESTINAL HAEMORRHAGE [None]
  - INTESTINAL OPERATION [None]
